FAERS Safety Report 15330248 (Version 1)
Quarter: 2018Q3

REPORT INFORMATION
  Report Type: Spontaneous
  Country: US (occurrence: US)
  Receive Date: 20180824
  Receipt Date: 20180824
  Transmission Date: 20181010
  Serious: Yes (Hospitalization)
  Sender: FDA-Public Use
  Company Number: None

PATIENT
  Age: 44 Year
  Sex: Female

DRUGS (17)
  1. BUSPIRONE [Concomitant]
     Active Substance: BUSPIRONE HYDROCHLORIDE
  2. HUMALOG [Concomitant]
     Active Substance: INSULIN LISPRO
  3. TROKENDI XR [Concomitant]
     Active Substance: TOPIRAMATE
  4. ALPRAZOLAM. [Concomitant]
     Active Substance: ALPRAZOLAM
  5. PHENAZOPYRID [Concomitant]
  6. ENBREL [Suspect]
     Active Substance: ETANERCEPT
     Indication: RHEUMATOID ARTHRITIS
     Dosage: ?          OTHER FREQUENCY:WEEKLY;?
     Route: 058
     Dates: start: 20180608
  7. GABAPENTIN. [Concomitant]
     Active Substance: GABAPENTIN
  8. PRAZOSIN. [Concomitant]
     Active Substance: PRAZOSIN
  9. QUETIAPINE. [Concomitant]
     Active Substance: QUETIAPINE
  10. BREO ELLIPTA [Concomitant]
     Active Substance: FLUTICASONE FUROATE\VILANTEROL TRIFENATATE
  11. BUPROPION. [Concomitant]
     Active Substance: BUPROPION
  12. FENTANYL. [Concomitant]
     Active Substance: FENTANYL
  13. FREESTYLE [Concomitant]
  14. DOXYCYC MONO [Concomitant]
     Active Substance: DOXYCYCLINE
  15. DULOXETINE. [Concomitant]
     Active Substance: DULOXETINE
  16. METOCLOPRAM [Concomitant]
     Active Substance: METOCLOPRAMIDE
  17. TIZANIDINE. [Concomitant]
     Active Substance: TIZANIDINE

REACTIONS (1)
  - Infection [None]

NARRATIVE: CASE EVENT DATE: 20180807
